FAERS Safety Report 25951495 (Version 2)
Quarter: 2025Q4

REPORT INFORMATION
  Report Type: Report from Study
  Country: CO (occurrence: CO)
  Receive Date: 20251023
  Receipt Date: 20251106
  Transmission Date: 20260117
  Serious: No
  Sender: JOHNSON AND JOHNSON
  Company Number: CO-JNJFOC-20251001209

PATIENT
  Age: 62 Year
  Sex: Male
  Weight: 66 kg

DRUGS (2)
  1. TREMFYA [Suspect]
     Active Substance: GUSELKUMAB
     Indication: Psoriasis
     Route: 058
     Dates: start: 20250502
  2. TREMFYA [Suspect]
     Active Substance: GUSELKUMAB

REACTIONS (4)
  - Device defective [Unknown]
  - Accidental exposure to product [Unknown]
  - Device deployment issue [Unknown]
  - Product dose omission issue [Unknown]

NARRATIVE: CASE EVENT DATE: 20250801
